FAERS Safety Report 6138683-0 (Version None)
Quarter: 2009Q1

REPORT INFORMATION
  Report Type: 
  Country: None (occurrence: None)
  Receive Date: 20090331
  Receipt Date: 20090212
  Transmission Date: 20090719
  Serious: Yes (Hospitalization)
  Sender: FDA-Public Use
  Company Number: IT-PURDUE-USA_2009_0037603

PATIENT
  Age: 60 Year
  Sex: Female

DRUGS (2)
  1. TRAMADOL (SIMILAR TO NDA 21-745) [Suspect]
     Indication: NECK PAIN
     Dosage: 100 MG, DAILY
     Route: 048
     Dates: start: 20090205, end: 20090205
  2. CARVEDILOL [Concomitant]

REACTIONS (1)
  - ANGINA UNSTABLE [None]
